FAERS Safety Report 15993018 (Version 2)
Quarter: 2019Q1

REPORT INFORMATION
  Report Type: Report from Study
  Country: None (occurrence: GB)
  Receive Date: 20190221
  Receipt Date: 20190312
  Transmission Date: 20190418
  Serious: Yes (Other)
  Sender: FDA-Public Use
  Company Number: GB-ABBVIE-19S-167-2670622-00

PATIENT
  Sex: Male

DRUGS (2)
  1. DUODOPA [Suspect]
     Active Substance: CARBIDOPA\LEVODOPA
     Dosage: ASD
     Route: 050
  2. DUODOPA [Suspect]
     Active Substance: CARBIDOPA\LEVODOPA
     Indication: PARKINSON^S DISEASE
     Dosage: ONE 100ML CASSETTE DAILY 5MG/1ML 20MG/1ML
     Route: 050

REACTIONS (6)
  - Dyskinesia [Unknown]
  - Muscle rigidity [Unknown]
  - Adverse reaction [Unknown]
  - Device connection issue [Unknown]
  - Therapeutic response shortened [Unknown]
  - Device dislocation [Unknown]
